FAERS Safety Report 9682776 (Version 1)
Quarter: 2013Q4

REPORT INFORMATION
  Report Type: Spontaneous
  Country: NL (occurrence: NL)
  Receive Date: 20131112
  Receipt Date: 20131112
  Transmission Date: 20140711
  Serious: Yes (Other)
  Sender: FDA-Public Use
  Company Number: PHHY2013NL125799

PATIENT
  Sex: Male

DRUGS (1)
  1. NILOTINIB [Suspect]
     Indication: CHRONIC MYELOID LEUKAEMIA
     Route: 048
     Dates: start: 201110, end: 201303

REACTIONS (6)
  - Cardiomyopathy [Unknown]
  - Dyspnoea [Unknown]
  - Ejection fraction decreased [Unknown]
  - Atrial fibrillation [Unknown]
  - Leukaemia recurrent [Unknown]
  - Chronic myeloid leukaemia [Unknown]
